FAERS Safety Report 6757122-X (Version None)
Quarter: 2010Q2

REPORT INFORMATION
  Report Type: 
  Country: None (occurrence: None)
  Receive Date: 20100604
  Receipt Date: 20100528
  Transmission Date: 20101027
  Serious: Yes (Hospitalization, Other)
  Sender: FDA-Public Use
  Company Number: US-AMGEN-QUU415242

PATIENT
  Sex: Male
  Weight: 103.41 kg

DRUGS (10)
  1. NPLATE [Suspect]
     Indication: IDIOPATHIC THROMBOCYTOPENIC PURPURA
  2. CALCIUM CARBONATE [Concomitant]
  3. LISINOPRIL [Concomitant]
  4. ACTONEL [Concomitant]
  5. SIMVASTATIN [Concomitant]
  6. GLUCOSAMINE [Concomitant]
  7. FEXOFENADINE [Concomitant]
  8. IMMU-G [Concomitant]
     Route: 042
  9. SOLU-MEDROL [Concomitant]
  10. SENOKOT [Concomitant]

REACTIONS (4)
  - HAEMORRHAGIC DIATHESIS [None]
  - PETECHIAE [None]
  - PLATELET COUNT DECREASED [None]
  - PLATELET COUNT INCREASED [None]
